FAERS Safety Report 10032301 (Version 2)
Quarter: 2014Q2

REPORT INFORMATION
  Report Type: Report from Study
  Country: US (occurrence: US)
  Receive Date: 20140324
  Receipt Date: 20140402
  Transmission Date: 20141212
  Serious: Yes (Other)
  Sender: FDA-Public Use
  Company Number: PHEH2014US005626

PATIENT
  Sex: Female

DRUGS (14)
  1. GILENYA [Suspect]
     Indication: MULTIPLE SCLEROSIS
     Dosage: 0.5 MG, QD
     Route: 048
     Dates: start: 20130618
  2. LEXAPRO [Concomitant]
  3. LIDOCAINE [Concomitant]
  4. LUNESTA [Concomitant]
  5. LYRICA [Concomitant]
  6. METHADONE HCL [Concomitant]
  7. MIRALAX [Concomitant]
  8. ADVAIR DISKUS [Concomitant]
  9. ASPIRIN [Concomitant]
  10. BACLOFEN [Concomitant]
  11. EXCEDRIN P.M. [Concomitant]
  12. FLUTICASONE PROPIONATE [Concomitant]
  13. FOSAMAX [Concomitant]
  14. HYDROCODONE/ACETAMINOPHEN [Concomitant]

REACTIONS (1)
  - Neoplasm malignant [Unknown]
